FAERS Safety Report 6769413-7 (Version None)
Quarter: 2010Q2

REPORT INFORMATION
  Report Type: 
  Country: None (occurrence: None)
  Receive Date: 20100615
  Receipt Date: 20100610
  Transmission Date: 20101027
  Serious: Yes (Other)
  Sender: FDA-Public Use
  Company Number: US-B.I. PHARMACEUTICALS,INC./RIDGEFIELD-2010-BP-05758BP

PATIENT
  Age: 57 Year
  Sex: Male

DRUGS (6)
  1. AGGRENOX [Suspect]
     Indication: CEREBROVASCULAR ACCIDENT
  2. SIMVASTATIN [Concomitant]
     Dosage: 40 MG
  3. VITAMIN B COMPLEX CAP [Concomitant]
  4. CEREFOLIN NAC [Concomitant]
  5. LISINOPRIL [Concomitant]
     Dosage: 10 MG
  6. OMEPRAZOLE [Concomitant]
     Dosage: 20 MG

REACTIONS (1)
  - TRANSIENT ISCHAEMIC ATTACK [None]
